FAERS Safety Report 9250262 (Version 1)
Quarter: 2013Q2

REPORT INFORMATION
  Report Type: Spontaneous
  Country: US (occurrence: US)
  Receive Date: 20130424
  Receipt Date: 20130424
  Transmission Date: 20140414
  Serious: Yes (Hospitalization, Other)
  Sender: FDA-Public Use
  Company Number: US-RANBAXY-2005US-01324

PATIENT
  Age: 8 Month
  Sex: 0

DRUGS (1)
  1. ACETAMINOPHEN AND CODEINE PHOSPHATE [Suspect]
     Indication: PYREXIA
     Dosage: UNK
     Route: 065

REACTIONS (8)
  - Mental impairment [Recovered/Resolved]
  - Hypotonia [Recovered/Resolved]
  - Apnoea [Recovered/Resolved]
  - Cyanosis [Recovered/Resolved]
  - Decreased activity [Recovered/Resolved]
  - Accidental exposure to product [Recovered/Resolved]
  - Pneumonia [Recovering/Resolving]
  - Respiratory distress [Recovering/Resolving]
